FAERS Safety Report 9867309 (Version 1)
Quarter: 2014Q1

REPORT INFORMATION
  Report Type: Spontaneous
  Country: US (occurrence: US)
  Receive Date: 20140204
  Receipt Date: 20140204
  Transmission Date: 20141002
  Serious: Yes (Other)
  Sender: FDA-Public Use
  Company Number: PHEH2014US002052

PATIENT
  Sex: Female

DRUGS (1)
  1. EXELON PATCH [Suspect]
     Dosage: UNK UKN, UNK

REACTIONS (6)
  - Dementia [Unknown]
  - Fall [Unknown]
  - Memory impairment [Unknown]
  - Crying [Unknown]
  - Depression [Unknown]
  - Confusional state [Unknown]
